FAERS Safety Report 4324687-7 (Version None)
Quarter: 2004Q1

REPORT INFORMATION
  Report Type: 
  Country: None (occurrence: None)
  Receive Date: 20040322
  Receipt Date: 20040310
  Transmission Date: 20041129
  Serious: Yes (Other)
  Sender: FDA-Public Use
  Company Number: 200410178BCA

PATIENT
  Age: 77 Year
  Sex: Female
  Weight: 72.5755 kg

DRUGS (5)
  1. CIPRO [Suspect]
     Indication: URINARY TRACT INFECTION
     Dosage: 250 MG, BID, ORAL
     Route: 048
     Dates: start: 20031203, end: 20031204
  2. WARFARIN SODIUM [Concomitant]
  3. ALTACE [Concomitant]
  4. APO-DILTIAZEM [Concomitant]
  5. FOSAMAX [Concomitant]

REACTIONS (3)
  - ERYTHEMA MULTIFORME [None]
  - OEDEMA PERIPHERAL [None]
  - PRURITUS [None]
